FAERS Safety Report 25784499 (Version 3)
Quarter: 2025Q4

REPORT INFORMATION
  Report Type: Spontaneous
  Country: EU (occurrence: EU)
  Receive Date: 20250910
  Receipt Date: 20251111
  Transmission Date: 20260117
  Serious: Yes (Hospitalization, Other)
  Sender: Kenvue
  Company Number: EU-NAPPMUNDI-GBR-2025-0128320

PATIENT

DRUGS (12)
  1. ACETAMINOPHEN [Suspect]
     Active Substance: ACETAMINOPHEN
     Indication: Abdominal pain
     Dosage: PARACETAMOL 3 X 1 G
     Route: 065
  2. CANNABIS SATIVA SUBSP. INDICA TOP [Suspect]
     Active Substance: CANNABIS SATIVA SUBSP. INDICA TOP
     Indication: Abdominal pain
     Dosage: STARTING AT A DOSE OF 0.2 G/DAY OF VAPORIZED HERB
     Route: 065
  3. FENTANYL [Suspect]
     Active Substance: FENTANYL
     Indication: Breakthrough pain
     Dosage: INTRANASAL FENTANYL IF NECESSARY
     Route: 045
  4. KETOPROFEN [Suspect]
     Active Substance: KETOPROFEN
     Indication: Thunderclap headache
     Dosage: 100 MG OF ORAL KETOPROFEN
     Route: 048
  5. METAMIZOLE [Suspect]
     Active Substance: METAMIZOLE
     Indication: Thunderclap headache
     Dosage: 1000 MILLIGRAM
     Route: 065
  6. METAMIZOLE [Suspect]
     Active Substance: METAMIZOLE
     Dosage: 4 ? 1 G
     Route: 065
  7. OXYCODONE HYDROCHLORIDE [Suspect]
     Active Substance: OXYCODONE HYDROCHLORIDE
     Indication: Abdominal pain
     Dosage: 80 MILLIGRAM, BID
     Route: 048
  8. OXYCODONE HYDROCHLORIDE [Suspect]
     Active Substance: OXYCODONE HYDROCHLORIDE
     Dosage: 100 MILLIGRAM, BID
     Route: 048
  9. OXYCODONE HYDROCHLORIDE [Suspect]
     Active Substance: OXYCODONE HYDROCHLORIDE
     Dosage: 60 MILLIGRAM, BID
     Route: 048
  10. QUETIAPINE [Suspect]
     Active Substance: QUETIAPINE
     Indication: Abdominal pain
     Dosage: QUETIAPINE 2 X 25 MG
     Route: 065
  11. SERTRALINE [Suspect]
     Active Substance: SERTRALINE HYDROCHLORIDE
     Indication: Abdominal pain
     Dosage: 100 MILLIGRAM, DAILY
     Route: 065
  12. LACTULOSE [Concomitant]
     Active Substance: LACTULOSE
     Indication: Constipation
     Dosage: HE WAS ADDITIONALLY GIVEN LACTULOSE 3 X 15 ML
     Route: 065

REACTIONS (4)
  - Anticholinergic effect [Recovered/Resolved]
  - Reversible cerebral vasoconstriction syndrome [Recovered/Resolved]
  - Functional gastrointestinal disorder [Unknown]
  - Therapeutic product effect incomplete [Unknown]
